FAERS Safety Report 7255834-5 (Version None)
Quarter: 2011Q1

REPORT INFORMATION
  Report Type: 
  Country: None (occurrence: None)
  Receive Date: 20110129
  Receipt Date: 20100520
  Transmission Date: 20110831
  Serious: No
  Sender: FDA-Public Use
  Company Number: US-ABBOTT-10P-163-0646093-00

PATIENT
  Age: 33 Year
  Sex: Female

DRUGS (4)
  1. HUMIRA [Suspect]
     Indication: CROHN'S DISEASE
     Dates: start: 20100307
  2. NORTREL 7/7/7 [Concomitant]
     Indication: CONTRACEPTION
  3. PRAVASTATIN [Concomitant]
     Indication: PRODUCT USED FOR UNKNOWN INDICATION
     Dates: end: 20100506
  4. ULTRAM [Concomitant]
     Indication: PAIN

REACTIONS (2)
  - ARTHRALGIA [None]
  - MYALGIA [None]
